FAERS Safety Report 7469544-2 (Version None)
Quarter: 2011Q2

REPORT INFORMATION
  Report Type: 
  Country: None (occurrence: None)
  Receive Date: 20110510
  Receipt Date: 20110503
  Transmission Date: 20111010
  Serious: No
  Sender: FDA-Public Use
  Company Number: PHHY2011US32179

PATIENT
  Sex: Female

DRUGS (2)
  1. BROMOCRIPTINE MESYLATE [Concomitant]
  2. TASIGNA [Suspect]
     Indication: CHRONIC MYELOID LEUKAEMIA
     Dosage: 300 MG, BID
     Route: 048
     Dates: start: 20110303

REACTIONS (4)
  - BACK PAIN [None]
  - FLUSHING [None]
  - RASH GENERALISED [None]
  - NECK PAIN [None]
